FAERS Safety Report 18191351 (Version 1)
Quarter: 2020Q3

REPORT INFORMATION
  Report Type: Spontaneous
  Country: US (occurrence: US)
  Receive Date: 20200824
  Receipt Date: 20200824
  Transmission Date: 20201103
  Serious: Yes (Hospitalization)
  Sender: FDA-Public Use
  Company Number: None

PATIENT
  Age: 56 Year
  Sex: Male

DRUGS (13)
  1. OLANZAPINE. [Concomitant]
     Active Substance: OLANZAPINE
  2. ONDANSETRON [Concomitant]
     Active Substance: ONDANSETRON
  3. STIMULANT TAB [Concomitant]
  4. TAFINLAR [Concomitant]
     Active Substance: DABRAFENIB MESYLATE
  5. SENNA [Concomitant]
     Active Substance: SENNA LEAF\SENNOSIDES\SENNOSIDES A AND B
  6. SERTRALINE [Concomitant]
     Active Substance: SERTRALINE HYDROCHLORIDE
  7. TAFINLAR [Suspect]
     Active Substance: DABRAFENIB MESYLATE
     Indication: MALIGNANT MELANOMA
  8. BUPROPION. [Concomitant]
     Active Substance: BUPROPION
  9. GABAPENTIN. [Concomitant]
     Active Substance: GABAPENTIN
  10. HYDROMORPHON [Concomitant]
     Active Substance: HYDROMORPHONE
  11. LISINOPRIL. [Concomitant]
     Active Substance: LISINOPRIL
  12. MEKINIST [Suspect]
     Active Substance: TRAMETINIB DIMETHYL SULFOXIDE
     Indication: MALIGNANT MELANOMA
     Route: 048
     Dates: start: 20200815
  13. QUETIPANE [Concomitant]

REACTIONS (2)
  - Arthropod bite [None]
  - Peripheral swelling [None]

NARRATIVE: CASE EVENT DATE: 20200812
